FAERS Safety Report 4886730-6 (Version None)
Quarter: 2006Q1

REPORT INFORMATION
  Report Type: 
  Country: None (occurrence: None)
  Receive Date: 20060119
  Receipt Date: 20060103
  Transmission Date: 20060701
  Serious: Yes (Death, Hospitalization)
  Sender: FDA-Public Use
  Company Number: 221153

PATIENT
  Age: 76 Year
  Sex: Female

DRUGS (4)
  1. AVASTIN [Suspect]
     Indication: COLORECTAL CANCER
     Dosage: 500 MG, INTRAVENOUS
     Route: 042
     Dates: start: 20051208, end: 20051008
  2. OXALIPLATIN (OXALIPLATIN) [Suspect]
     Indication: COLORECTAL CANCER
     Dosage: 200 MG
     Dates: start: 20051205, end: 20051008
  3. CAPECITABINE (CAPECITABINE) [Suspect]
     Indication: COLORECTAL CANCER
     Dosage: 3000 MG, BID, ORAL
     Route: 048
     Dates: start: 20051208, end: 20051208
  4. LOPERAMIDE [Concomitant]

REACTIONS (7)
  - ASPIRATION [None]
  - ASTHENIA [None]
  - DEHYDRATION [None]
  - DIARRHOEA [None]
  - DYSPNOEA [None]
  - OESOPHAGITIS [None]
  - PULMONARY EMBOLISM [None]
